FAERS Safety Report 6837009-4 (Version None)
Quarter: 2010Q3

REPORT INFORMATION
  Report Type: 
  Country: None (occurrence: None)
  Receive Date: 20100713
  Receipt Date: 20070428
  Transmission Date: 20110219
  Serious: No
  Sender: FDA-Public Use
  Company Number: US-PFIZER INC-2007035077

PATIENT
  Sex: Female
  Weight: 56.818 kg

DRUGS (4)
  1. CHANTIX [Suspect]
     Indication: SMOKING CESSATION THERAPY
     Dates: start: 20070401
  2. DURAGESIC-100 [Concomitant]
  3. LEXAPRO [Concomitant]
  4. ROXICODONE [Concomitant]

REACTIONS (2)
  - ABNORMAL DREAMS [None]
  - NAUSEA [None]
